FAERS Safety Report 8996131 (Version 1)
Quarter: 2013Q1

REPORT INFORMATION
  Report Type: Spontaneous
  Country: IT (occurrence: IT)
  Receive Date: 20130103
  Receipt Date: 20130103
  Transmission Date: 20140127
  Serious: Yes (Hospitalization)
  Sender: FDA-Public Use
  Company Number: IT-PFIZER INC-2012332287

PATIENT
  Age: 54 Year
  Sex: Female

DRUGS (1)
  1. QUARK [Suspect]
     Dosage: 2.5 MG, 1X/DAY
     Route: 048
     Dates: start: 20121213, end: 20121217

REACTIONS (4)
  - Diplopia [Unknown]
  - Blood pressure increased [Unknown]
  - Malaise [Unknown]
  - Headache [Unknown]
